FAERS Safety Report 16712192 (Version 2)
Quarter: 2019Q3

REPORT INFORMATION
  Report Type: Spontaneous
  Country: US (occurrence: US)
  Receive Date: 20190816
  Receipt Date: 20190910
  Transmission Date: 20191004
  Serious: No
  Sender: FDA-Public Use
  Company Number: US-BIOGEN-2019BI00765679

PATIENT
  Age: 30 Year
  Sex: Female

DRUGS (3)
  1. TECFIDERA [Suspect]
     Active Substance: DIMETHYL FUMARATE
     Route: 048
     Dates: start: 20190711
  2. TECFIDERA [Suspect]
     Active Substance: DIMETHYL FUMARATE
     Route: 048
     Dates: start: 20190722, end: 20190801
  3. TECFIDERA [Suspect]
     Active Substance: DIMETHYL FUMARATE
     Indication: MULTIPLE SCLEROSIS
     Route: 048
     Dates: start: 20190712, end: 20190811

REACTIONS (7)
  - Flushing [Unknown]
  - Pain [Unknown]
  - Irritability [Unknown]
  - Gastrooesophageal reflux disease [Not Recovered/Not Resolved]
  - Gastric disorder [Unknown]
  - Abdominal pain upper [Unknown]
  - Anger [Unknown]

NARRATIVE: CASE EVENT DATE: 20190714
